FAERS Safety Report 13527919 (Version 3)
Quarter: 2021Q3

REPORT INFORMATION
  Report Type: Spontaneous
  Country: US (occurrence: US)
  Receive Date: 20170509
  Receipt Date: 20210705
  Transmission Date: 20211014
  Serious: Yes (Hospitalization, Other)
  Sender: FDA-Public Use
  Company Number: US-PFIZER INC-2017199512

PATIENT
  Age: 56 Year
  Sex: Male

DRUGS (1)
  1. LYRICA [Suspect]
     Active Substance: PREGABALIN
     Dosage: UNK

REACTIONS (6)
  - Neuropathy peripheral [Unknown]
  - Back pain [Unknown]
  - Tremor [Unknown]
  - Dyspnoea [Unknown]
  - Dementia [Unknown]
  - Pain in extremity [Unknown]
